FAERS Safety Report 10236287 (Version 1)
Quarter: 2014Q1

REPORT INFORMATION
  Report Type: Spontaneous
  Country: US (occurrence: None)
  Receive Date: 20140306
  Receipt Date: 20140306
  Transmission Date: 20141002
  Serious: Yes (Hospitalization, Disabling)
  Sender: FDA-Public Use
  Company Number: 163-21880-13044049

PATIENT
  Age: 86 Year
  Sex: Male

DRUGS (10)
  1. REVLIMID (LENALIDOMIDE) (10 MILLIGRAM, CAPSULES) [Suspect]
     Indication: PLASMA CELL MYELOMA
     Route: 048
     Dates: start: 201205
  2. LISINOPRIL (LISINOPRIL) [Concomitant]
  3. KCL (POTASSIUM CHLORIDE) [Concomitant]
  4. WARFARIN (WARFARIN) [Concomitant]
  5. ZOLPIDEM (ZOLPIDEM) [Concomitant]
  6. TAMSULOSIN (TAMSULOSIN) [Concomitant]
  7. LOVASTATIN (LOVASTATIN) [Concomitant]
  8. DIGOXIN (DIGOXIN) [Concomitant]
  9. METOPROLOL (METOPROLOL) [Concomitant]
  10. DEXAMETHASONE (DEXAMETHASONE) [Concomitant]

REACTIONS (1)
  - Cardiac failure congestive [None]
